FAERS Safety Report 4910158-3 (Version None)
Quarter: 2006Q1

REPORT INFORMATION
  Report Type: 
  Country: None (occurrence: None)
  Receive Date: 20060209
  Receipt Date: 20060123
  Transmission Date: 20060701
  Serious: Yes (Other)
  Sender: FDA-Public Use
  Company Number: USA050496172

PATIENT
  Age: 65 Year
  Sex: Male
  Weight: 102.5 kg

DRUGS (9)
  1. STRATTERA [Suspect]
     Indication: ATTENTION DEFICIT/HYPERACTIVITY DISORDER
     Dosage: 80 MG, DAILY (1/D)
     Dates: start: 20050201, end: 20050420
  2. RABEPRAZOLE  (RABEPRAZOLE) [Concomitant]
  3. POTASSIUM CHLORIDE [Concomitant]
  4. METOPROLOL (METOPROLOL) [Concomitant]
  5. GEMFIBROZIL [Concomitant]
  6. LOPERAMIDE HCL [Concomitant]
  7. GABAPENTIN [Concomitant]
  8. OMEGA 3 (FISH OIL) [Concomitant]
  9. VITAMINS [Concomitant]

REACTIONS (16)
  - BALANCE DISORDER [None]
  - CONTUSION [None]
  - DIPLOPIA [None]
  - DIZZINESS [None]
  - DRY MOUTH [None]
  - DYSURIA [None]
  - EYE IRRITATION [None]
  - EYE PRURITUS [None]
  - FALL [None]
  - FEELING ABNORMAL [None]
  - GAIT DISTURBANCE [None]
  - HEADACHE [None]
  - INSOMNIA [None]
  - MEMORY IMPAIRMENT [None]
  - SELF MUTILATION [None]
  - VISION BLURRED [None]
